FAERS Safety Report 19832479 (Version 1)
Quarter: 2021Q3

REPORT INFORMATION
  Report Type: Spontaneous
  Country: US (occurrence: US)
  Receive Date: 20210915
  Receipt Date: 20210915
  Transmission Date: 20211014
  Serious: Yes (Other)
  Sender: FDA-Public Use
  Company Number: None

PATIENT
  Age: 38 Year
  Sex: Female
  Weight: 55.8 kg

DRUGS (2)
  1. OTEZLA [Concomitant]
     Active Substance: APREMILAST
  2. QWO [Suspect]
     Active Substance: COLLAGENASE CLOSTRIDIUM HISTOLYTICUM-AAES
     Indication: PEAU D^ORANGE
     Dosage: ?          OTHER ROUTE:INJECTION?
     Dates: start: 20210903

REACTIONS (3)
  - Injection site pruritus [None]
  - Injection site urticaria [None]
  - Urticaria [None]

NARRATIVE: CASE EVENT DATE: 20210908
